FAERS Safety Report 8070513-2 (Version None)
Quarter: 2012Q1

REPORT INFORMATION
  Report Type: 
  Country: None (occurrence: None)
  Receive Date: 20120125
  Receipt Date: 20120118
  Transmission Date: 20120608
  Serious: Yes (Hospitalization)
  Sender: FDA-Public Use
  Company Number: FR-ABBOTT-12P-056-0894795-00

PATIENT
  Sex: Male

DRUGS (1)
  1. FENOFIBRATE [Suspect]
     Indication: HYPERTRIGLYCERIDAEMIA
     Dates: start: 20111221, end: 20111222

REACTIONS (5)
  - PRURIGO [None]
  - RASH MACULO-PAPULAR [None]
  - FEELING HOT [None]
  - OEDEMA [None]
  - CONJUNCTIVAL HYPERAEMIA [None]
